FAERS Safety Report 4376854-4 (Version None)
Quarter: 2004Q2

REPORT INFORMATION
  Report Type: 
  Country: None (occurrence: None)
  Receive Date: 20040609
  Receipt Date: 20040325
  Transmission Date: 20050107
  Serious: Yes (Other)
  Sender: FDA-Public Use
  Company Number: USA-2002-002727

PATIENT
  Age: 32 Year
  Sex: Female

DRUGS (1)
  1. YASMIN [Suspect]
     Dosage: 1 TAB, 1X/DAY; ORAL
     Route: 048

REACTIONS (2)
  - DEEP VEIN THROMBOSIS [None]
  - PULMONARY EMBOLISM [None]
